FAERS Safety Report 8251147-3 (Version None)
Quarter: 2012Q2

REPORT INFORMATION
  Report Type: 
  Country: None (occurrence: None)
  Receive Date: 20120402
  Receipt Date: 20120329
  Transmission Date: 20120825
  Serious: Yes (Other)
  Sender: FDA-Public Use
  Company Number: US-ROXANE LABORATORIES, INC.-2012-RO-00916RO

PATIENT
  Age: 85 Year
  Sex: Female

DRUGS (3)
  1. RISEDRONATE SODIUM [Suspect]
     Indication: OSTEOPOROSIS
  2. METHOTREXATE [Suspect]
     Indication: RHEUMATOID ARTHRITIS
  3. PREDNISONE TAB [Suspect]
     Indication: RHEUMATOID ARTHRITIS

REACTIONS (3)
  - INJURY [None]
  - FEMUR FRACTURE [None]
  - FALL [None]
